FAERS Safety Report 25617316 (Version 1)
Quarter: 2025Q3

REPORT INFORMATION
  Report Type: Spontaneous
  Country: US (occurrence: None)
  Receive Date: 20250728
  Receipt Date: 20250728
  Transmission Date: 20251020
  Serious: Yes (Hospitalization)
  Sender: FDA-CTU
  Company Number: None

PATIENT
  Age: 79 Year
  Sex: Female

DRUGS (1)
  1. SUNITINIB [Suspect]
     Active Substance: SUNITINIB
     Dosage: 50MG DAILY FOR 28DAYS ON THE

REACTIONS (5)
  - Stomatitis [None]
  - Dyspnoea [None]
  - Pulmonary oedema [None]
  - Nausea [None]
  - Vomiting [None]
